FAERS Safety Report 10730742 (Version 1)
Quarter: 2015Q1

REPORT INFORMATION
  Report Type: Spontaneous
  Country: BR (occurrence: BR)
  Receive Date: 20150122
  Receipt Date: 20150122
  Transmission Date: 20150721
  Serious: Yes (Hospitalization, Other)
  Sender: FDA-Public Use
  Company Number: BR-PFIZER INC-2014302303

PATIENT
  Age: 58 Year
  Sex: Male
  Weight: 103 kg

DRUGS (3)
  1. SUTENT [Suspect]
     Active Substance: SUNITINIB MALATE
     Indication: RENAL CANCER METASTATIC
     Dosage: 50 MG, CYCLIC (14 DAYS AND PAUSE OF 14 DAYS)
     Route: 048
     Dates: start: 2013, end: 201406
  2. OMEPRAZOLE. [Concomitant]
     Active Substance: OMEPRAZOLE
  3. LOSARTAN [Concomitant]
     Active Substance: LOSARTAN
     Dosage: 100 MG, DAILY (2 TABLETS OR CAPSULES OF 50 MG PER DAY, IN THE MORNING AND AT NIGHT)

REACTIONS (8)
  - Cerebrovascular accident [Recovered/Resolved]
  - Blood magnesium decreased [Unknown]
  - Vomiting [Unknown]
  - Formication [Recovered/Resolved]
  - Blood calcium decreased [Unknown]
  - Cerebrovascular accident [Recovered/Resolved]
  - Asthenia [Unknown]
  - Confusional state [Unknown]

NARRATIVE: CASE EVENT DATE: 201403
